FAERS Safety Report 23638253 (Version 1)
Quarter: 2024Q1

REPORT INFORMATION
  Report Type: Spontaneous
  Country: JP (occurrence: None)
  Receive Date: 20240315
  Receipt Date: 20240315
  Transmission Date: 20240410
  Serious: Yes (Death, Other)
  Sender: FDA-Public Use
  Company Number: 2024A062887

PATIENT
  Age: 84 Year
  Sex: Female

DRUGS (5)
  1. ONDEXXYA [Suspect]
     Active Substance: ANDEXANET ALFA
     Indication: Haemorrhagic infarction
     Dosage: DOSE UNKNOWN
     Route: 042
     Dates: start: 20230824, end: 20230824
  2. ONDEXXYA [Suspect]
     Active Substance: ANDEXANET ALFA
     Indication: Haemorrhagic infarction
     Dosage: DOSE UNKNOWN
     Route: 042
     Dates: start: 20230831, end: 20230831
  3. ELIQUIS [Concomitant]
     Active Substance: APIXABAN
     Indication: Atrial fibrillation
     Dosage: DOSE UNKNOWN
     Route: 065
  4. ELIQUIS [Concomitant]
     Active Substance: APIXABAN
     Indication: Cerebral infarction
     Dosage: DOSE UNKNOWN
     Route: 065
     Dates: start: 20230828, end: 20230830
  5. EDOXABAN TOSYLATE [Concomitant]
     Active Substance: EDOXABAN TOSYLATE
     Dosage: DOSE UNKNOWN
     Dates: start: 20230831

REACTIONS (6)
  - Cardiac failure chronic [Fatal]
  - Malnutrition [Fatal]
  - Dehydration [Fatal]
  - Anaemia [Fatal]
  - Haemodynamic instability [Fatal]
  - Embolic stroke [Unknown]

NARRATIVE: CASE EVENT DATE: 20230827
